FAERS Safety Report 10948838 (Version 1)
Quarter: 2015Q1

REPORT INFORMATION
  Report Type: Spontaneous
  Country: US (occurrence: US)
  Receive Date: 20150324
  Receipt Date: 20150324
  Transmission Date: 20150721
  Serious: No
  Sender: FDA-Public Use
  Company Number: US-PFIZER INC-2015090922

PATIENT
  Age: 28 Year
  Sex: Female
  Weight: 95 kg

DRUGS (4)
  1. HYDROCODONE [Concomitant]
     Active Substance: HYDROCODONE
     Dosage: UNK (10/325 MG)
  2. LYRICA [Suspect]
     Active Substance: PREGABALIN
     Indication: SPINA BIFIDA
     Dosage: 150 MG, 3X/DAY
     Route: 048
     Dates: end: 20150308
  3. LYRICA [Suspect]
     Active Substance: PREGABALIN
     Indication: PAIN
  4. KLONOPIN [Concomitant]
     Active Substance: CLONAZEPAM
     Indication: ANXIETY
     Dosage: 1 MG, UNK

REACTIONS (5)
  - Diarrhoea [Not Recovered/Not Resolved]
  - Malaise [Not Recovered/Not Resolved]
  - Feeling abnormal [Not Recovered/Not Resolved]
  - Gait disturbance [Not Recovered/Not Resolved]
  - Abdominal pain upper [Not Recovered/Not Resolved]

NARRATIVE: CASE EVENT DATE: 201501
